FAERS Safety Report 8087836-3 (Version None)
Quarter: 2012Q1

REPORT INFORMATION
  Report Type: 
  Country: None (occurrence: None)
  Receive Date: 20120128
  Receipt Date: 20110502
  Transmission Date: 20120608
  Serious: No
  Sender: FDA-Public Use
  Company Number: US-ABBOTT-11P-163-0723073-00

PATIENT
  Age: 26 Year
  Sex: Female

DRUGS (3)
  1. ENTOCORT EC [Concomitant]
     Indication: CROHN'S DISEASE
  2. TOPAMAX [Concomitant]
     Indication: MIGRAINE
     Dosage: AT NIGHT
     Dates: start: 20110301
  3. HUMIRA [Suspect]
     Indication: CROHN'S DISEASE
     Dates: start: 20101201

REACTIONS (1)
  - FATIGUE [None]
